FAERS Safety Report 21105891 (Version 1)
Quarter: 2022Q3

REPORT INFORMATION
  Report Type: Report from Study
  Country: CA (occurrence: CA)
  Receive Date: 20220720
  Receipt Date: 20220720
  Transmission Date: 20221026
  Serious: Yes (Other)
  Sender: FDA-Public Use
  Company Number: CA-HLS-202200610

PATIENT
  Age: 51 Year
  Sex: Male

DRUGS (3)
  1. CLOZARIL [Suspect]
     Active Substance: CLOZAPINE
     Indication: Product used for unknown indication
     Dosage: INCREASE TODAY
     Route: 048
     Dates: start: 20220218
  2. AMITRIPTYLINE [Concomitant]
     Active Substance: AMITRIPTYLINE
     Indication: Product used for unknown indication
     Dosage: 50 MG HS
     Route: 065
  3. QUETIAPINE [Concomitant]
     Active Substance: QUETIAPINE
     Indication: Product used for unknown indication
     Dosage: 200 MG REGULAR, 400 MG XR
     Route: 065

REACTIONS (13)
  - Apathy [Unknown]
  - Hallucination, auditory [Unknown]
  - Pain [Unknown]
  - C-reactive protein increased [Unknown]
  - Blood pressure increased [Unknown]
  - Investigation noncompliance [Unknown]
  - Electrocardiogram T wave amplitude decreased [Unknown]
  - Insomnia [Unknown]
  - Decreased interest [Unknown]
  - Soliloquy [Unknown]
  - Myocarditis [Unknown]
  - Red blood cell count increased [Unknown]
  - Psychotic disorder [Unknown]

NARRATIVE: CASE EVENT DATE: 20220702
